FAERS Safety Report 9056979 (Version 1)
Quarter: 2013Q1

REPORT INFORMATION
  Report Type: Report from Study
  Country: US (occurrence: US)
  Receive Date: 20130131
  Receipt Date: 20130131
  Transmission Date: 20140127
  Serious: No
  Sender: FDA-Public Use
  Company Number: US-ABBOTT-12P-163-0989792-00

PATIENT
  Age: 72 Year
  Sex: Female

DRUGS (10)
  1. HUMIRA [Suspect]
     Indication: PSORIASIS
     Dates: start: 20120127
  2. SYNTHROID [Concomitant]
     Indication: HYPOTHYROIDISM
  3. LEVOCETIRIZINE [Concomitant]
     Indication: HYPERSENSITIVITY
  4. PAXIL [Concomitant]
     Indication: ANXIETY
  5. AMARYL [Concomitant]
     Indication: DIABETES MELLITUS
  6. DIOVAN [Concomitant]
     Indication: HYPERTENSION
  7. METFORMIN [Concomitant]
     Indication: DIABETES MELLITUS
  8. PREVACID [Concomitant]
     Indication: GASTROOESOPHAGEAL REFLUX DISEASE
  9. CELEBREX [Concomitant]
     Indication: OSTEOARTHRITIS
  10. MULTIVMITAMIN [Concomitant]
     Indication: VITAMIN SUPPLEMENTATION

REACTIONS (3)
  - Incorrect dose administered [Unknown]
  - Wrong technique in drug usage process [Recovered/Resolved]
  - Injection site haemorrhage [Unknown]
